FAERS Safety Report 8788515 (Version 1)
Quarter: 2012Q4

REPORT INFORMATION
  Report Type: 
  Country: US (occurrence: US)
  Receive Date: 20120914
  Receipt Date: 20120914
  Transmission Date: 20130627
  Serious: Yes (Other)
  Sender: FDA-Public Use
  Company Number: US-VERTEX PHARMACEUTICAL INC.-2012-019697

PATIENT
  Age: 60 Year
  Sex: Female
  Weight: 82 kg

DRUGS (5)
  1. INCIVEK [Suspect]
     Indication: HEPATITIS C
     Dosage: 750 mg, tid
     Route: 048
     Dates: start: 20110819, end: 20111111
  2. PEGASYS [Concomitant]
     Indication: HEPATITIS C
     Dosage: 180 mcg weekly
     Route: 058
     Dates: start: 20110819, end: 20120720
  3. RIBAVIRIN [Concomitant]
     Indication: HEPATITIS C
     Dosage: 600 mg, bid
     Route: 048
     Dates: start: 20110819, end: 20111216
  4. RIBAVIRIN [Concomitant]
     Dosage: 400 mg, bid
     Route: 048
     Dates: start: 20120112
  5. RIBAVIRIN [Concomitant]
     Dosage: UNK
     Route: 048
     Dates: end: 201206

REACTIONS (1)
  - Anaemia [Recovered/Resolved]
